FAERS Safety Report 7603828-X (Version None)
Quarter: 2011Q3

REPORT INFORMATION
  Report Type: 
  Country: None (occurrence: None)
  Receive Date: 20110712
  Receipt Date: 20110706
  Transmission Date: 20111222
  Serious: Yes (Hospitalization)
  Sender: FDA-Public Use
  Company Number: FR-GLAXOSMITHKLINE-B0731087A

PATIENT
  Age: 60 Year
  Sex: Male

DRUGS (2)
  1. PAROXETINE HYDROCHLORIDE [Concomitant]
     Indication: DEPRESSION
     Dosage: 20MG PER DAY
     Route: 048
     Dates: start: 20110114
  2. BETAMETHASONE VALERATE [Suspect]
     Indication: NEURODERMATITIS
     Route: 061
     Dates: start: 20110222, end: 20110318

REACTIONS (1)
  - TENDON RUPTURE [None]
